FAERS Safety Report 24672800 (Version 1)
Quarter: 2024Q4

REPORT INFORMATION
  Report Type: Spontaneous
  Country: US (occurrence: US)
  Receive Date: 20241128
  Receipt Date: 20241128
  Transmission Date: 20250115
  Serious: Yes (Hospitalization, Other)
  Sender: AMGEN
  Company Number: US-AMGEN-USASP2024230833

PATIENT
  Age: 66 Year
  Sex: Female

DRUGS (8)
  1. PREDNISONE [Suspect]
     Active Substance: PREDNISONE
     Indication: Ophthalmic herpes zoster
     Dosage: UNK (FIVE DAYS)
     Route: 065
  2. PREDNISONE [Suspect]
     Active Substance: PREDNISONE
     Indication: Varicella zoster virus infection
     Dosage: UNK (HIGH-DOSE, 5-DAY COURSE)
     Route: 048
  3. PREDNISONE [Suspect]
     Active Substance: PREDNISONE
     Dosage: UNK (5-DAY COURSE)
     Route: 048
  4. ACYCLOVIR [Concomitant]
     Active Substance: ACYCLOVIR
     Indication: Ophthalmic herpes zoster
     Dosage: UNK
     Route: 065
  5. ACYCLOVIR [Concomitant]
     Active Substance: ACYCLOVIR
     Indication: Varicella zoster virus infection
     Dosage: UNK (2-WEEK COURSE)
     Route: 040
  6. ACYCLOVIR [Concomitant]
     Active Substance: ACYCLOVIR
     Dosage: UNK (SECOND 2-WEEK COURSE)
     Route: 040
  7. ACYCLOVIR [Concomitant]
     Active Substance: ACYCLOVIR
     Dosage: UNK (THIRD 2-WEEK COURSE)
     Route: 040
  8. ACYCLOVIR [Concomitant]
     Active Substance: ACYCLOVIR
     Dosage: 800 MILLIGRAM, QID (FOUR TIMES A DAY)
     Route: 048

REACTIONS (6)
  - Ischaemic stroke [Recovered/Resolved]
  - Cerebral infarction [Recovered/Resolved]
  - Varicella zoster virus infection [Unknown]
  - Cerebral artery stenosis [Unknown]
  - Fall [Recovered/Resolved]
  - Off label use [Unknown]
